FAERS Safety Report 5276103-9 (Version None)
Quarter: 2007Q1

REPORT INFORMATION
  Report Type: 
  Country: None (occurrence: None)
  Receive Date: 20070326
  Receipt Date: 20070314
  Transmission Date: 20070707
  Serious: Yes (Hospitalization)
  Sender: FDA-Public Use
  Company Number: FRWYE026514MAR07

PATIENT
  Age: 53 Year
  Sex: Female

DRUGS (2)
  1. EFFEXOR XR [Suspect]
     Route: 048
     Dates: start: 20070131, end: 20070201
  2. PROZAC [Suspect]
     Dosage: UNKNOWN
     Route: 048
     Dates: end: 20070130

REACTIONS (2)
  - BLOOD PRESSURE SYSTOLIC INCREASED [None]
  - MENINGORRHAGIA [None]
